FAERS Safety Report 20643580 (Version 1)
Quarter: 2022Q1

REPORT INFORMATION
  Report Type: Spontaneous
  Country: US (occurrence: None)
  Receive Date: 20220327
  Receipt Date: 20220327
  Transmission Date: 20220423
  Serious: No
  Sender: FDA-Public Use
  Company Number: None

PATIENT
  Age: 60 Year
  Sex: Female
  Weight: 104.85 kg

DRUGS (1)
  1. PHILLIPS ORIGINAL MILK OF MAGNESIA [Suspect]
     Active Substance: MAGNESIUM HYDROXIDE
     Route: 048

REACTIONS (4)
  - Abdominal pain upper [None]
  - Body temperature increased [None]
  - Constipation [None]
  - Product quality issue [None]

NARRATIVE: CASE EVENT DATE: 20220316
